FAERS Safety Report 4344410-X (Version None)
Quarter: 2004Q2

REPORT INFORMATION
  Report Type: 
  Country: None (occurrence: None)
  Receive Date: 20040421
  Receipt Date: 20040421
  Transmission Date: 20050107
  Serious: Yes (Life-Threatening, Hospitalization)
  Sender: FDA-Public Use
  Company Number: None

PATIENT
  Age: 43 Year
  Sex: Female
  Weight: 61.6892 kg

DRUGS (3)
  1. WELLBUTRIN [Suspect]
     Indication: EX-SMOKER
     Dosage: 1-3X DAILY
     Dates: start: 20000901
  2. PROZAC [Suspect]
     Indication: DEPRESSION
     Dosage: 1 X DAILY
  3. WELLBUTRIN [Concomitant]

REACTIONS (1)
  - HOSPITALISATION [None]
